FAERS Safety Report 15843377 (Version 1)
Quarter: 2019Q1

REPORT INFORMATION
  Report Type: Spontaneous
  Country: BR (occurrence: BR)
  Receive Date: 20190118
  Receipt Date: 20190118
  Transmission Date: 20190417
  Serious: Yes (Other)
  Sender: FDA-Public Use
  Company Number: BR-JNJFOC-20190114341

PATIENT
  Age: 68 Year
  Sex: Female

DRUGS (1)
  1. IMBRUVICA [Suspect]
     Active Substance: IBRUTINIB
     Indication: LEUKAEMIA
     Route: 048
     Dates: start: 20180923

REACTIONS (9)
  - Pain in extremity [Not Recovered/Not Resolved]
  - Osteoporosis [Unknown]
  - Blister infected [Not Recovered/Not Resolved]
  - Skin discolouration [Unknown]
  - Skin exfoliation [Unknown]
  - Petechiae [Not Recovered/Not Resolved]
  - Spinal fracture [Unknown]
  - Wound [Not Recovered/Not Resolved]
  - Pruritus [Not Recovered/Not Resolved]

NARRATIVE: CASE EVENT DATE: 201810
